FAERS Safety Report 8473112-3 (Version None)
Quarter: 2012Q2

REPORT INFORMATION
  Report Type: 
  Country: None (occurrence: None)
  Receive Date: 20120627
  Receipt Date: 20120622
  Transmission Date: 20120825
  Serious: Yes (Hospitalization)
  Sender: FDA-Public Use
  Company Number: US-GILEAD-2012-0054893

PATIENT
  Sex: Female

DRUGS (2)
  1. LETAIRIS [Suspect]
     Indication: PRODUCT USED FOR UNKNOWN INDICATION
     Dosage: 5 MG, UNK
     Route: 048
     Dates: start: 20111019
  2. TYVASO [Concomitant]

REACTIONS (8)
  - LAZINESS [None]
  - THROAT IRRITATION [None]
  - MALAISE [None]
  - UPPER RESPIRATORY TRACT INFECTION [None]
  - MOVEMENT DISORDER [None]
  - NASOPHARYNGITIS [None]
  - UNEVALUABLE EVENT [None]
  - COUGH [None]
